FAERS Safety Report 12423819 (Version 1)
Quarter: 2016Q2

REPORT INFORMATION
  Report Type: Spontaneous
  Country: PT (occurrence: PT)
  Receive Date: 20160601
  Receipt Date: 20160601
  Transmission Date: 20160815
  Serious: Yes (Other)
  Sender: FDA-Public Use
  Company Number: PT-PFIZER INC-2016274068

PATIENT
  Age: 49 Year
  Sex: Female

DRUGS (6)
  1. METHYLPREDNISOLONE. [Concomitant]
     Active Substance: METHYLPREDNISOLONE
     Indication: ALLERGY PROPHYLAXIS
     Dosage: 125 MG, CYCLIC (EVERY 21 DAYS)
     Route: 042
     Dates: start: 20160504, end: 20160504
  2. CLEMASTINA [Concomitant]
     Indication: ALLERGY PROPHYLAXIS
     Dosage: 2 MG, CYCLIC (EVERY 21 DAYS)
     Route: 042
     Dates: start: 20160504, end: 20160504
  3. ONDANSETRON [Concomitant]
     Active Substance: ONDANSETRON
     Indication: PROPHYLAXIS OF NAUSEA AND VOMITING
     Dosage: 8 MG, CYCLIC (EVERY 21 DYAS)
     Route: 042
     Dates: start: 20160504, end: 20160504
  4. RANITIDINE. [Concomitant]
     Active Substance: RANITIDINE
     Indication: PROPHYLAXIS AGAINST GASTROINTESTINAL ULCER
     Dosage: 50 MG, CYCLIC (EVERY 21 DAYS)
     Route: 042
     Dates: start: 20160504, end: 20160504
  5. DEXAMETHASONE. [Concomitant]
     Active Substance: DEXAMETHASONE
     Indication: PROPHYLAXIS OF NAUSEA AND VOMITING
     Dosage: 20 MG, CYCLIC (EVERY 21 DAYS)
     Route: 042
     Dates: start: 20160504, end: 20160504
  6. NOVOPLATINUM [Suspect]
     Active Substance: CARBOPLATIN
     Indication: OVARIAN CANCER
     Dosage: 510 MG, CYCLIC (EVERY 21 DAYS)
     Route: 042
     Dates: start: 20160504, end: 20160504

REACTIONS (4)
  - Erythema [Recovered/Resolved]
  - Dysphonia [Recovered/Resolved]
  - Pruritus [Recovered/Resolved]
  - Nasal congestion [Recovered/Resolved]

NARRATIVE: CASE EVENT DATE: 20160504
